FAERS Safety Report 5134302-0 (Version None)
Quarter: 2006Q4

REPORT INFORMATION
  Report Type: 
  Country: None (occurrence: None)
  Receive Date: 20060831
  Receipt Date: 20060627
  Transmission Date: 20070319
  Serious: No
  Sender: FDA-Public Use
  Company Number: 2006-BP-07375BP

PATIENT
  Sex: Male

DRUGS (5)
  1. SPIRIVA [Suspect]
     Indication: DYSPNOEA
     Dosage: 18 MCG (18 MCG,1 IN 1 D),IH
  2. FORADIL [Concomitant]
  3. ZESTRIL [Concomitant]
  4. COREG [Concomitant]
  5. ASMANEX TWISTHALER [Concomitant]

REACTIONS (1)
  - AGEUSIA [None]
